FAERS Safety Report 7375007-5 (Version None)
Quarter: 2011Q1

REPORT INFORMATION
  Report Type: 
  Country: None (occurrence: None)
  Receive Date: 20110325
  Receipt Date: 20110321
  Transmission Date: 20110831
  Serious: Yes (Death)
  Sender: FDA-Public Use
  Company Number: PHHY2011US01076

PATIENT
  Sex: Male
  Weight: 144 kg

DRUGS (1)
  1. EXJADE [Suspect]
     Indication: MYELODYSPLASTIC SYNDROME
     Dosage: 375 MG, QD
     Route: 048
     Dates: start: 20101101

REACTIONS (1)
  - ACUTE LEUKAEMIA [None]
